FAERS Safety Report 15597089 (Version 2)
Quarter: 2018Q4

REPORT INFORMATION
  Report Type: Spontaneous
  Country: JP (occurrence: JP)
  Receive Date: 20181108
  Receipt Date: 20181126
  Transmission Date: 20190205
  Serious: Yes (Other)
  Sender: FDA-Public Use
  Company Number: JP-009507513-1810JPN003922J

PATIENT
  Age: 78 Year
  Sex: Male
  Weight: 71 kg

DRUGS (7)
  1. FENTANYL. [Concomitant]
     Active Substance: FENTANYL
     Dosage: UNK
     Route: 065
  2. ESLAX INTRAVENOUS 25MG/2.5ML [Suspect]
     Active Substance: ROCURONIUM BROMIDE
     Indication: CANCER SURGERY
     Dosage: UNK
     Route: 051
  3. PROPOFOL. [Concomitant]
     Active Substance: PROPOFOL
     Dosage: UNK
     Route: 065
  4. SEVOFLURANE. [Concomitant]
     Active Substance: SEVOFLURANE
     Dosage: UNK
     Route: 065
  5. BRIDION [Suspect]
     Active Substance: SUGAMMADEX
     Indication: CANCER SURGERY
     Dosage: 200 MILLIGRAM
     Route: 042
  6. REMIFENTANIL HYDROCHLORIDE. [Concomitant]
     Active Substance: REMIFENTANIL HYDROCHLORIDE
     Dosage: UNK
     Route: 065
  7. DESFLURANE. [Concomitant]
     Active Substance: DESFLURANE
     Dosage: UNK
     Route: 065

REACTIONS (1)
  - Airway complication of anaesthesia [Unknown]
